FAERS Safety Report 6104958-4 (Version None)
Quarter: 2009Q1

REPORT INFORMATION
  Report Type: 
  Country: None (occurrence: None)
  Receive Date: 20090306
  Receipt Date: 20090226
  Transmission Date: 20090719
  Serious: Yes (Hospitalization, Other)
  Sender: FDA-Public Use
  Company Number: US-AMGEN-QUU335991

PATIENT
  Sex: Female

DRUGS (3)
  1. ENBREL [Suspect]
     Indication: RHEUMATOID ARTHRITIS
     Route: 058
     Dates: end: 20090219
  2. ENBREL [Suspect]
     Indication: SCLERODERMA
  3. METHOTREXATE [Concomitant]

REACTIONS (4)
  - CARDIAC DISORDER [None]
  - IMMEDIATE POST-INJECTION REACTION [None]
  - PAIN [None]
  - PYREXIA [None]
